FAERS Safety Report 20338521 (Version 1)
Quarter: 2022Q1

REPORT INFORMATION
  Report Type: Spontaneous
  Country: US (occurrence: None)
  Receive Date: 20220116
  Receipt Date: 20220116
  Transmission Date: 20220423
  Serious: No
  Sender: FDA-Public Use
  Company Number: 2022A018655

PATIENT
  Age: 16128 Day
  Sex: Male
  Weight: 113.4 kg

DRUGS (1)
  1. PULMICORT FLEXHALER [Suspect]
     Active Substance: BUDESONIDE
     Indication: COVID-19 pneumonia
     Dosage: 180 MCG 2 PUFFS BID
     Route: 055
     Dates: start: 20220103

REACTIONS (5)
  - Malaise [Unknown]
  - Extra dose administered [Unknown]
  - Device malfunction [Unknown]
  - Incorrect dose administered by device [Unknown]
  - Off label use [Not Recovered/Not Resolved]

NARRATIVE: CASE EVENT DATE: 20220103
